FAERS Safety Report 4834892-9 (Version None)
Quarter: 2005Q4

REPORT INFORMATION
  Report Type: 
  Country: None (occurrence: None)
  Receive Date: 20051122
  Receipt Date: 20051107
  Transmission Date: 20060501
  Serious: Yes (Hospitalization, Other)
  Sender: FDA-Public Use
  Company Number: PHBS2005GB16452

PATIENT
  Age: 60 Year
  Sex: Male

DRUGS (5)
  1. CYCLOSPORINE [Suspect]
     Indication: RENAL TRANSPLANT
     Dosage: 200 MG, BID
     Route: 065
  2. AZATHIOPRINE [Suspect]
     Indication: RENAL TRANSPLANT
     Route: 065
  3. TACROLIMUS [Suspect]
     Indication: RENAL TRANSPLANT
     Dosage: 7 MG, BID
  4. PREDNISOLONE [Suspect]
     Indication: RENAL TRANSPLANT
     Dosage: 15 MG, QD
  5. PREDNISOLONE [Suspect]
     Dosage: 7.5 MG, QD

REACTIONS (19)
  - ABDOMINAL PAIN [None]
  - ALANINE AMINOTRANSFERASE INCREASED [None]
  - BLOOD GLUCOSE INCREASED [None]
  - C-REACTIVE PROTEIN INCREASED [None]
  - CYTOMEGALOVIRUS INFECTION [None]
  - DIABETES MELLITUS INSULIN-DEPENDENT [None]
  - GAMMA-GLUTAMYLTRANSFERASE INCREASED [None]
  - GINGIVAL HYPERTROPHY [None]
  - GRAFT COMPLICATION [None]
  - HEPATITIS [None]
  - HERPES SIMPLEX [None]
  - HERPES ZOSTER [None]
  - LYMPHOPENIA [None]
  - MALAISE [None]
  - PYREXIA [None]
  - RASH PRURITIC [None]
  - RASH VESICULAR [None]
  - SKIN HYPERPIGMENTATION [None]
  - THROMBOCYTOPENIA [None]
